FAERS Safety Report 9927715 (Version 1)
Quarter: 2014Q1

REPORT INFORMATION
  Report Type: Spontaneous
  Country: CD (occurrence: CD)
  Receive Date: 20140227
  Receipt Date: 20140227
  Transmission Date: 20141002
  Serious: Yes (Hospitalization, Other)
  Sender: FDA-Public Use
  Company Number: CD-009507513-1402COD012133

PATIENT
  Sex: Male
  Weight: 50 kg

DRUGS (1)
  1. IVERMECTIN [Suspect]
     Dosage: 3 DF, FREQUENCY UNKNOWN
     Route: 048
     Dates: start: 20131103

REACTIONS (5)
  - Coma [Recovered/Resolved]
  - Urinary incontinence [Recovered/Resolved]
  - Conjunctival haemorrhage [Recovered/Resolved]
  - Diarrhoea [Recovered/Resolved]
  - Headache [Recovered/Resolved]
